FAERS Safety Report 7576037-0 (Version None)
Quarter: 2011Q2

REPORT INFORMATION
  Report Type: 
  Country: None (occurrence: None)
  Receive Date: 20110628
  Receipt Date: 20110616
  Transmission Date: 20111010
  Serious: Yes (Hospitalization)
  Sender: FDA-Public Use
  Company Number: RO-BAYER-2011-052077

PATIENT
  Age: 28 Year
  Sex: Female

DRUGS (3)
  1. NEXAVAR [Suspect]
     Indication: HEPATIC NEOPLASM MALIGNANT
     Dosage: DAILY DOSE 800 MG
     Route: 048
     Dates: start: 20110503, end: 20110604
  2. CODEINE [Concomitant]
     Indication: BONE PAIN
     Dosage: UNK
     Route: 048
     Dates: start: 20110401, end: 20110601
  3. ACETAMINOPHEN [Concomitant]
     Indication: BONE PAIN
     Dosage: DAILY DOSE 1500 MG
     Route: 048
     Dates: start: 20110401, end: 20110601

REACTIONS (4)
  - PALPITATIONS [None]
  - CHEST PAIN [None]
  - VERTIGO [None]
  - ANGINA PECTORIS [None]
